FAERS Safety Report 14340454 (Version 1)
Quarter: 2018Q1

REPORT INFORMATION
  Report Type: Report from Study
  Country: KR (occurrence: KR)
  Receive Date: 20180101
  Receipt Date: 20180101
  Transmission Date: 20180509
  Serious: Yes (Hospitalization)
  Sender: FDA-Public Use
  Company Number: KR-ROCHE-2046789

PATIENT
  Age: 80 Year
  Sex: Male

DRUGS (6)
  1. ULGUT [Concomitant]
     Route: 048
     Dates: start: 20150807, end: 20150813
  2. AVODART [Concomitant]
     Active Substance: DUTASTERIDE
     Indication: BENIGN PROSTATIC HYPERPLASIA
     Route: 048
     Dates: start: 20070403, end: 20150806
  3. SOLETON [Concomitant]
     Active Substance: ZALTOPROFEN
     Route: 048
     Dates: start: 20150807, end: 20150813
  4. VARIDASE [Concomitant]
     Route: 048
     Dates: start: 20150807, end: 20150813
  5. HARNAL [Concomitant]
     Active Substance: TAMSULOSIN HYDROCHLORIDE
     Indication: BENIGN PROSTATIC HYPERPLASIA
     Route: 048
     Dates: start: 20100624, end: 20150806
  6. TOCILIZUMAB. [Suspect]
     Active Substance: TOCILIZUMAB
     Indication: RHEUMATOID ARTHRITIS
     Dosage: SUBSEQUENT DOSES ON: 16/JUL/2014, 02/SEP/2015, 06/OCT/2015, 03/NOV/2015, 26/JAN/2016, 02/MAR/2016, A
     Route: 042
     Dates: start: 20140716

REACTIONS (1)
  - Lower limb fracture [Recovered/Resolved]

NARRATIVE: CASE EVENT DATE: 20150811
